APPROVED DRUG PRODUCT: TRAVAMULSION 20%
Active Ingredient: SOYBEAN OIL
Strength: 20%
Dosage Form/Route: INJECTABLE;INJECTION
Application: N018758 | Product #001
Applicant: BAXTER HEALTHCARE CORP
Approved: Feb 15, 1983 | RLD: No | RS: No | Type: DISCN